FAERS Safety Report 10975808 (Version 1)
Quarter: 2015Q2

REPORT INFORMATION
  Report Type: Spontaneous
  Country: US (occurrence: US)
  Receive Date: 20150401
  Receipt Date: 20150401
  Transmission Date: 20150821
  Serious: No
  Sender: FDA-Public Use
  Company Number: US-PFIZER INC-2015112381

PATIENT
  Age: 42 Year
  Sex: Male
  Weight: 76 kg

DRUGS (1)
  1. BICILLIN L-A [Suspect]
     Active Substance: PENICILLIN G BENZATHINE
     Indication: INFECTION
     Dosage: AT TWO SHOTS (1.2 MILLION UNITS EACH), UNK
     Dates: start: 20150320, end: 20150320

REACTIONS (2)
  - Paraesthesia [Not Recovered/Not Resolved]
  - Burning sensation [Not Recovered/Not Resolved]

NARRATIVE: CASE EVENT DATE: 20150325
